FAERS Safety Report 14301805 (Version 1)
Quarter: 2017Q4

REPORT INFORMATION
  Report Type: Spontaneous
  Country: US (occurrence: US)
  Receive Date: 20171219
  Receipt Date: 20171219
  Transmission Date: 20180321
  Serious: No
  Sender: FDA-Public Use
  Company Number: US-SUPERNUS PHARMACEUTICALS, INC.-2017SUP00064

PATIENT
  Age: 62 Year
  Sex: Female
  Weight: 47.62 kg

DRUGS (11)
  1. CALTRATE [Concomitant]
     Active Substance: CALCIUM CARBONATE
  2. BIOTIN 5000 [Concomitant]
  3. OXTELLAR XR [Suspect]
     Active Substance: OXCARBAZEPINE
     Dosage: 2 TABLETS, 1X/DAY
     Route: 048
     Dates: start: 20170313, end: 20170314
  4. OXTELLAR XR [Suspect]
     Active Substance: OXCARBAZEPINE
     Indication: NEURALGIA
     Dosage: UNK, 1X/DAY
     Route: 048
     Dates: start: 20170314
  5. OXTELLAR XR [Suspect]
     Active Substance: OXCARBAZEPINE
     Indication: NEURALGIA
     Dosage: 1 TABLETS, 1X/DAY
     Route: 048
     Dates: start: 20170228, end: 20170313
  6. CENTRUM WOMEN 50+ [Concomitant]
  7. VITAMIN C [Concomitant]
     Active Substance: ASCORBIC ACID
  8. GABAPENTIN. [Concomitant]
     Active Substance: GABAPENTIN
     Dosage: 300 MG, UNK
  9. GABAPENTIN. [Concomitant]
     Active Substance: GABAPENTIN
     Dosage: 300 MG, 4X/DAY
  10. MELOXICAM. [Concomitant]
     Active Substance: MELOXICAM
     Dosage: 15 MG, 1X/DAY
  11. XANAX [Concomitant]
     Active Substance: ALPRAZOLAM
     Dosage: UNK UNK, AS NEEDED

REACTIONS (6)
  - Nausea [Not Recovered/Not Resolved]
  - Headache [Not Recovered/Not Resolved]
  - Abdominal pain upper [Unknown]
  - Back disorder [Not Recovered/Not Resolved]
  - Viral infection [Not Recovered/Not Resolved]
  - Off label use [Not Recovered/Not Resolved]

NARRATIVE: CASE EVENT DATE: 20170228
